FAERS Safety Report 8859121 (Version 1)
Quarter: 2012Q4

REPORT INFORMATION
  Report Type: Spontaneous
  Country: US (occurrence: None)
  Receive Date: 20121024
  Receipt Date: 20121024
  Transmission Date: 20130627
  Serious: Yes (Other)
  Sender: FDA-Public Use
  Company Number: None

PATIENT
  Age: 42 Year
  Sex: Female

DRUGS (1)
  1. ORENCIA [Suspect]
     Dosage: 125 MG SQ WEEKLY
     Route: 058
     Dates: start: 20121019, end: 20121019

REACTIONS (2)
  - Drug hypersensitivity [None]
  - Chest pain [None]
